FAERS Safety Report 8778099 (Version 1)
Quarter: 2012Q4

REPORT INFORMATION
  Report Type: 
  Country: AR (occurrence: AR)
  Receive Date: 20120911
  Receipt Date: 20120911
  Transmission Date: 20130627
  Serious: Yes (Other)
  Sender: FDA-Public Use
  Company Number: AR-AMGEN-ARGSP2012054352

PATIENT
  Age: 55 Year
  Sex: Female

DRUGS (3)
  1. ENBREL [Suspect]
     Indication: RHEUMATOID ARTHRITIS
     Dosage: 50 mg, weekly
     Route: 058
     Dates: start: 20100517, end: 201207
  2. METHOTREXATE [Concomitant]
     Dosage: UNK
     Dates: end: 201207
  3. FOLIC ACID [Concomitant]
     Dosage: UNK
     Dates: end: 201207

REACTIONS (4)
  - Pyrexia [Recovered/Resolved]
  - Urinary tract infection [Recovered/Resolved]
  - Pharyngitis [Recovered/Resolved]
  - Nasopharyngitis [Recovered/Resolved]
